FAERS Safety Report 6706978-5 (Version None)
Quarter: 2010Q2

REPORT INFORMATION
  Report Type: 
  Country: None (occurrence: None)
  Receive Date: 20100503
  Receipt Date: 20100426
  Transmission Date: 20101027
  Serious: Yes (Disabling, Other)
  Sender: FDA-Public Use
  Company Number: GXBR2010US00913

PATIENT
  Sex: Female
  Weight: 107.94 kg

DRUGS (1)
  1. BISOPROLOL FUMARATE TABLETS (NGX) [Suspect]
     Indication: CARDIAC FAILURE CONGESTIVE
     Dosage: 2.5 MG, QD
     Route: 048
     Dates: start: 20100101, end: 20100401

REACTIONS (4)
  - BLINDNESS UNILATERAL [None]
  - MYALGIA [None]
  - MYOPATHY [None]
  - RETINAL ARTERY OCCLUSION [None]
